FAERS Safety Report 11121816 (Version 2)
Quarter: 2015Q2

REPORT INFORMATION
  Report Type: Report from Study
  Country: PK (occurrence: PK)
  Receive Date: 20150519
  Receipt Date: 20150603
  Transmission Date: 20150821
  Serious: Yes (Other)
  Sender: FDA-Public Use
  Company Number: PHHY2015PK057603

PATIENT
  Age: 45 Year
  Sex: Male

DRUGS (1)
  1. TASIGNA [Suspect]
     Active Substance: NILOTINIB
     Indication: CHRONIC MYELOID LEUKAEMIA
     Dosage: 800 MG, QD
     Route: 048
     Dates: start: 20140806

REACTIONS (8)
  - Decreased appetite [Unknown]
  - Hepatitis C [Not Recovered/Not Resolved]
  - Jaundice [Unknown]
  - Fatigue [Unknown]
  - Chromaturia [Unknown]
  - Nausea [Unknown]
  - Chronic myeloid leukaemia [Not Recovered/Not Resolved]
  - Pyrexia [Unknown]

NARRATIVE: CASE EVENT DATE: 20150429
